FAERS Safety Report 4437740-4 (Version None)
Quarter: 2004Q3

REPORT INFORMATION
  Report Type: 
  Country: None (occurrence: None)
  Receive Date: 20040830
  Receipt Date: 20040830
  Transmission Date: 20050211
  Serious: Yes (Life-Threatening, Hospitalization)
  Sender: FDA-Public Use
  Company Number: None

PATIENT
  Sex: Female
  Weight: 55.3 kg

DRUGS (2)
  1. MS CONTIN [Suspect]
     Indication: PAIN
     Dosage: 60 MG WEEKLY ORAL
     Route: 048
  2. LORTAB [Concomitant]

REACTIONS (3)
  - APNOEA [None]
  - HYPOTENSION [None]
  - RESPIRATORY ARREST [None]
